FAERS Safety Report 8369056-8 (Version None)
Quarter: 2012Q2

REPORT INFORMATION
  Report Type: 
  Country: None (occurrence: None)
  Receive Date: 20120518
  Receipt Date: 20120509
  Transmission Date: 20120825
  Serious: Yes (Other)
  Sender: FDA-Public Use
  Company Number: GB-JNJFOC-20120308339

PATIENT
  Sex: Female

DRUGS (1)
  1. IBUPROFEN [Suspect]
     Indication: HEADACHE
     Route: 048
     Dates: start: 20120221, end: 20120101

REACTIONS (4)
  - EATING DISORDER [None]
  - OROPHARYNGEAL PAIN [None]
  - FOREIGN BODY [None]
  - CHOKING [None]
